FAERS Safety Report 24624756 (Version 1)
Quarter: 2024Q4

REPORT INFORMATION
  Report Type: Spontaneous
  Country: IE (occurrence: IE)
  Receive Date: 20241115
  Receipt Date: 20241115
  Transmission Date: 20250115
  Serious: Yes (Other)
  Sender: SAMSUNG BIOEPIS
  Company Number: IE-SAMSUNG BIOEPIS-SB-2024-33767

PATIENT
  Age: 26 Year
  Sex: Female

DRUGS (3)
  1. ADALIMUMAB [Suspect]
     Active Substance: ADALIMUMAB
     Indication: Colitis ulcerative
     Dosage: STARTING DOSE;
  2. ADALIMUMAB [Suspect]
     Active Substance: ADALIMUMAB
  3. PENTASA [Concomitant]
     Active Substance: MESALAMINE
     Indication: Colitis ulcerative

REACTIONS (3)
  - Organising pneumonia [Recovered/Resolved]
  - Microcytic anaemia [Recovered/Resolved]
  - Hilar lymphadenopathy [Unknown]
